FAERS Safety Report 6075999-0 (Version None)
Quarter: 2009Q1

REPORT INFORMATION
  Report Type: 
  Country: None (occurrence: None)
  Receive Date: 20090212
  Receipt Date: 20090202
  Transmission Date: 20090719
  Serious: Yes (Other)
  Sender: FDA-Public Use
  Company Number: JP-PFIZER INC-2009164717

PATIENT

DRUGS (3)
  1. CHAMPIX [Suspect]
     Route: 048
  2. UBRETID [Concomitant]
     Indication: DYSURIA
     Route: 048
  3. EBRANTIL [Concomitant]
     Indication: DYSURIA
     Route: 048

REACTIONS (1)
  - ANURIA [None]
